FAERS Safety Report 9633366 (Version 3)
Quarter: 2013Q4

REPORT INFORMATION
  Report Type: Spontaneous
  Country: US (occurrence: US)
  Receive Date: 20131021
  Receipt Date: 20131023
  Transmission Date: 20140711
  Serious: No
  Sender: FDA-Public Use
  Company Number: US-PFIZER INC-2013291157

PATIENT
  Age: 59 Year
  Sex: Male

DRUGS (3)
  1. FLAGYL [Suspect]
     Indication: CLOSTRIDIUM DIFFICILE COLITIS
     Dosage: UNK
  2. VANCOMYCIN [Suspect]
     Indication: CLOSTRIDIUM DIFFICILE COLITIS
     Dosage: 250 MG, 4X/DAY (1/2 TSP)
     Route: 048
  3. VANCOMYCIN [Suspect]
     Dosage: 250 MG, 4X/DAY (1/2 TSP)
     Route: 048

REACTIONS (1)
  - Drug ineffective [Unknown]
